FAERS Safety Report 7101978-8 (Version None)
Quarter: 2010Q4

REPORT INFORMATION
  Report Type: 
  Country: None (occurrence: None)
  Receive Date: 20101115
  Receipt Date: 20101110
  Transmission Date: 20110411
  Serious: Yes (Hospitalization, Other)
  Sender: FDA-Public Use
  Company Number: JP-ABBOTT-10P-087-0647549-00

PATIENT
  Sex: Female
  Weight: 38 kg

DRUGS (14)
  1. HUMIRA [Suspect]
     Indication: RHEUMATOID ARTHRITIS
     Route: 058
     Dates: start: 20090723, end: 20100401
  2. PREDNISOLONE [Concomitant]
     Indication: RHEUMATOID ARTHRITIS
     Dosage: 7.5 MG DAILY
     Dates: start: 20090723, end: 20100819
  3. PREDNISOLONE [Concomitant]
     Dosage: 6 MG DAILY
     Dates: start: 20100820
  4. FAMOTIDINE [Concomitant]
     Indication: GASTRITIS PROPHYLAXIS
     Dosage: 20 MG DAILY
     Dates: start: 20080327
  5. CALCIUM LACTATE [Concomitant]
     Indication: OSTEOPOROSIS PROPHYLAXIS
     Dosage: 3 GRAM DAILY
     Dates: start: 20080327
  6. SENNA LEAF_SENNA POD [Concomitant]
     Indication: PRODUCT USED FOR UNKNOWN INDICATION
     Dosage: 1 GRAM DAILY
     Dates: start: 20080327
  7. CHINESE HERBAL MEDICINE [Concomitant]
     Indication: SJOGREN'S SYNDROME
     Dosage: 9 GRAM DAILY
     Dates: start: 20080327
  8. CHINESE HERBAL MEDICINE [Concomitant]
     Indication: PROPHYLAXIS
  9. PANTETHINE [Concomitant]
     Indication: PRODUCT USED FOR UNKNOWN INDICATION
     Dosage: 3 GRAM DAILY
     Dates: start: 20080327
  10. ALFACALCIDOL [Concomitant]
     Indication: OSTEOPOROSIS PROPHYLAXIS
     Dosage: 0.5 MICROGRAM DAILY
     Dates: start: 20080327
  11. FLUVASTATIN SODIUM [Concomitant]
     Indication: PRODUCT USED FOR UNKNOWN INDICATION
     Dosage: 20 MILLIGRAM DAILY
     Dates: start: 20080327
  12. MOSAPRIDE CITRATE [Concomitant]
     Indication: PRODUCT USED FOR UNKNOWN INDICATION
     Dosage: 15 MG DAILY
     Dates: start: 20080327
  13. ITOPRIDE HYDROCHLORIDE [Concomitant]
     Indication: PRODUCT USED FOR UNKNOWN INDICATION
     Dosage: 150 MG DAILY
     Dates: start: 20080327
  14. CALCIUM GLUCONATE [Concomitant]
     Indication: OSTEOPOROSIS PROPHYLAXIS
     Dosage: 6 GRAM DAILY
     Dates: start: 20080327

REACTIONS (2)
  - APPENDICITIS [None]
  - INTUSSUSCEPTION [None]
